FAERS Safety Report 9704256 (Version 2)
Quarter: 2013Q4

REPORT INFORMATION
  Report Type: Spontaneous
  Country: US (occurrence: US)
  Receive Date: 20131122
  Receipt Date: 20131122
  Transmission Date: 20140711
  Serious: No
  Sender: FDA-Public Use
  Company Number: US-MYLANLABS-2013S1015415

PATIENT
  Sex: Male

DRUGS (2)
  1. AMLODIPINE BESYLATE TABLETS [Suspect]
     Indication: HYPERTENSION
     Dates: start: 20130628, end: 20130703
  2. AMLODIPINE BESYLATE TABLETS [Suspect]
     Indication: BLOOD PRESSURE INCREASED
     Dates: start: 20130628, end: 20130703

REACTIONS (8)
  - Amnesia [Recovered/Resolved]
  - Unevaluable event [Recovered/Resolved]
  - Fatigue [Recovered/Resolved]
  - Muscle disorder [Recovered/Resolved]
  - Muscular weakness [Not Recovered/Not Resolved]
  - Nausea [Not Recovered/Not Resolved]
  - Decreased appetite [Not Recovered/Not Resolved]
  - Influenza like illness [Recovered/Resolved]
